FAERS Safety Report 5342785-6 (Version None)
Quarter: 2007Q2

REPORT INFORMATION
  Report Type: 
  Country: None (occurrence: None)
  Receive Date: 20070601
  Receipt Date: 20070524
  Transmission Date: 20071010
  Serious: Yes (Other)
  Sender: FDA-Public Use
  Company Number: CL-PFIZER INC-2007042087

PATIENT
  Sex: Male

DRUGS (1)
  1. PREGABALIN [Suspect]
     Route: 048

REACTIONS (1)
  - TACHYCARDIA [None]
